FAERS Safety Report 10379986 (Version 1)
Quarter: 2014Q3

REPORT INFORMATION
  Report Type: Spontaneous
  Country: FR (occurrence: FR)
  Receive Date: 20140813
  Receipt Date: 20140813
  Transmission Date: 20150326
  Serious: Yes (Hospitalization)
  Sender: FDA-Public Use
  Company Number: FR-ROCHE-1447982

PATIENT
  Age: 66 Year
  Sex: Female
  Weight: 164 kg

DRUGS (11)
  1. LANTUS [Concomitant]
     Active Substance: INSULIN GLARGINE
  2. CARDENSIEL [Concomitant]
     Active Substance: BISOPROLOL FUMARATE
     Route: 065
  3. PANTOPRAZOLE [Concomitant]
     Active Substance: PANTOPRAZOLE SODIUM
     Route: 065
  4. ATORVASTATIN [Concomitant]
     Active Substance: ATORVASTATIN
     Route: 065
  5. LASILIX [Suspect]
     Active Substance: FUROSEMIDE
     Indication: PRODUCT USED FOR UNKNOWN INDICATION
     Route: 065
  6. ROCEPHINE [Suspect]
     Active Substance: CEFTRIAXONE SODIUM
     Indication: WOUND INFECTION
     Route: 058
     Dates: start: 20140528, end: 20140606
  7. TRIATEC (FRANCE) [Suspect]
     Active Substance: RAMIPRIL
     Indication: PRODUCT USED FOR UNKNOWN INDICATION
     Route: 065
  8. HUMALOG [Concomitant]
     Active Substance: INSULIN LISPRO
  9. AUGMENTIN [Suspect]
     Active Substance: AMOXICILLIN\CLAVULANATE POTASSIUM
     Indication: WOUND INFECTION
     Route: 048
     Dates: start: 20140507, end: 20140522
  10. AMLOR [Concomitant]
     Active Substance: AMLODIPINE BESYLATE
     Route: 065
  11. CALCIDOSE [Concomitant]
     Active Substance: CALCIUM CARBONATE

REACTIONS (2)
  - Renal failure acute [Not Recovered/Not Resolved]
  - Clostridium difficile colitis [Recovered/Resolved]

NARRATIVE: CASE EVENT DATE: 20140616
